FAERS Safety Report 7733841-3 (Version None)
Quarter: 2011Q3

REPORT INFORMATION
  Report Type: 
  Country: None (occurrence: None)
  Receive Date: 20110906
  Receipt Date: 20110906
  Transmission Date: 20111222
  Serious: No
  Sender: FDA-Public Use
  Company Number: None

PATIENT
  Sex: Female
  Weight: 65.7716 kg

DRUGS (1)
  1. LEVOTHYROXINE SODIUM [Suspect]
     Indication: THYROID DISORDER
     Dosage: 88 MG 1 P E DAY

REACTIONS (4)
  - BLOOD THYROID STIMULATING HORMONE DECREASED [None]
  - GASTROINTESTINAL DISORDER [None]
  - DRY SKIN [None]
  - PRODUCT SUBSTITUTION ISSUE [None]
